FAERS Safety Report 17353980 (Version 4)
Quarter: 2024Q1

REPORT INFORMATION
  Report Type: Spontaneous
  Country: US (occurrence: US)
  Receive Date: 20200131
  Receipt Date: 20240215
  Transmission Date: 20240410
  Serious: Yes (Other)
  Sender: FDA-Public Use
  Company Number: US-GILEAD-2020-0448732

PATIENT
  Age: 49 Year
  Sex: Male
  Weight: 79.8 kg

DRUGS (22)
  1. ATRIPLA [Suspect]
     Active Substance: EFAVIRENZ\EMTRICITABINE\TENOFOVIR DISOPROXIL FUMARATE
     Indication: HIV infection
     Dosage: UNK
     Route: 048
     Dates: start: 2005
  2. ATRIPLA [Suspect]
     Active Substance: EFAVIRENZ\EMTRICITABINE\TENOFOVIR DISOPROXIL FUMARATE
     Dosage: UNK
     Route: 048
     Dates: start: 20090708, end: 202004
  3. BIKTARVY [Concomitant]
     Active Substance: BICTEGRAVIR SODIUM\EMTRICITABINE\TENOFOVIR ALAFENAMIDE FUMARATE
  4. CEPHALEXIN [Concomitant]
     Active Substance: CEPHALEXIN
  5. CHANTIX [Concomitant]
     Active Substance: VARENICLINE TARTRATE
  6. CYCLOBENZAPRINE [Concomitant]
     Active Substance: CYCLOBENZAPRINE
  7. HYDROCODONE [Concomitant]
     Active Substance: HYDROCODONE
  8. LAMOTRIGINE [Concomitant]
     Active Substance: LAMOTRIGINE
  9. METHYLPREDNISOLONE [Concomitant]
     Active Substance: METHYLPREDNISOLONE
  10. PROPOXYPHENE [Concomitant]
     Active Substance: PROPOXYPHENE
  11. ZOLPIDEM [Concomitant]
     Active Substance: ZOLPIDEM TARTRATE
  12. VICODIN [Concomitant]
     Active Substance: ACETAMINOPHEN\HYDROCODONE BITARTRATE
  13. LORAZEPAM [Concomitant]
     Active Substance: LORAZEPAM
  14. LITHIUM CARBONATE [Concomitant]
     Active Substance: LITHIUM CARBONATE
  15. SEROQUEL [Concomitant]
     Active Substance: QUETIAPINE FUMARATE
  16. ASMANEX [Concomitant]
     Active Substance: MOMETASONE FUROATE
  17. TESTIM [Concomitant]
     Active Substance: TESTOSTERONE
  18. LEVOTHYROXINE [Concomitant]
     Active Substance: LEVOTHYROXINE\LEVOTHYROXINE SODIUM
  19. CYANOCOBALAMIN [Concomitant]
     Active Substance: CYANOCOBALAMIN
  20. ACTICIN [TRETINOIN] [Concomitant]
  21. TESTOSTERONE CYPIONATE [Concomitant]
     Active Substance: TESTOSTERONE CYPIONATE
  22. VENTOLIN HFA [Concomitant]
     Active Substance: ALBUTEROL SULFATE

REACTIONS (11)
  - Osteoporosis [Not Recovered/Not Resolved]
  - Renal injury [Not Recovered/Not Resolved]
  - Foot fracture [Unknown]
  - Wrist fracture [Unknown]
  - Rib fracture [Unknown]
  - Economic problem [Not Recovered/Not Resolved]
  - Anhedonia [Not Recovered/Not Resolved]
  - Emotional distress [Not Recovered/Not Resolved]
  - Bone density decreased [Not Recovered/Not Resolved]
  - Anxiety [Not Recovered/Not Resolved]
  - Pain [Not Recovered/Not Resolved]

NARRATIVE: CASE EVENT DATE: 20131017
